FAERS Safety Report 8343287-5 (Version None)
Quarter: 2012Q2

REPORT INFORMATION
  Report Type: 
  Country: None (occurrence: None)
  Receive Date: 20120508
  Receipt Date: 20120428
  Transmission Date: 20120825
  Serious: Yes (Other)
  Sender: FDA-Public Use
  Company Number: US-BAYER-2012-042529

PATIENT
  Age: 71 Year
  Sex: Female
  Weight: 61.224 kg

DRUGS (1)
  1. ASPIRIN [Suspect]
     Indication: ARTHRALGIA
     Dosage: 2 DF, UNK
     Route: 048
     Dates: start: 20120426, end: 20120428

REACTIONS (3)
  - HEARING IMPAIRED [None]
  - ARTHRITIS [None]
  - HYPOACUSIS [None]
